FAERS Safety Report 18642422 (Version 1)
Quarter: 2020Q4

REPORT INFORMATION
  Report Type: Spontaneous
  Country: US (occurrence: US)
  Receive Date: 20201220
  Receipt Date: 20201220
  Transmission Date: 20210114
  Serious: Yes (Death, Hospitalization)
  Sender: FDA-Public Use
  Company Number: None

PATIENT
  Sex: Female
  Weight: 13.3 kg

DRUGS (7)
  1. DOXORUBICIN HYDROCHLORIDE. [Concomitant]
     Active Substance: DOXORUBICIN HYDROCHLORIDE
  2. ZINECARD [Concomitant]
     Active Substance: DEXRAZOXANE HYDROCHLORIDE
  3. GLEEVEC [Concomitant]
     Active Substance: IMATINIB MESYLATE
  4. DEXAMETHASONE (34521) [Suspect]
     Active Substance: DEXAMETHASONE
  5. METHOTREXATE. [Concomitant]
     Active Substance: METHOTREXATE
  6. ONCASPAR [Concomitant]
     Active Substance: PEGASPARGASE
  7. VINCRISTINE SULFATE. [Concomitant]
     Active Substance: VINCRISTINE SULFATE

REACTIONS (3)
  - Cerebral ischaemia [None]
  - Pulse absent [None]
  - Condition aggravated [None]

NARRATIVE: CASE EVENT DATE: 20201126
